FAERS Safety Report 7715986-7 (Version None)
Quarter: 2011Q3

REPORT INFORMATION
  Report Type: 
  Country: None (occurrence: None)
  Receive Date: 20110822
  Receipt Date: 20110805
  Transmission Date: 20111222
  Serious: Yes (Life-Threatening, Hospitalization)
  Sender: FDA-Public Use
  Company Number: 2011MA011396

PATIENT
  Age: 73 Year
  Sex: Female

DRUGS (1)
  1. HYDROCORTISONE 2.5% CREAM [Suspect]
     Indication: ADRENAL INSUFFICIENCY
     Dosage: 100 MG;  ;IV
     Route: 042

REACTIONS (8)
  - UNRESPONSIVE TO STIMULI [None]
  - PULSELESS ELECTRICAL ACTIVITY [None]
  - HYPOPITUITARISM [None]
  - METASTASES TO PITUITARY GLAND [None]
  - CARDIAC ARREST [None]
  - DIABETES INSIPIDUS [None]
  - ADRENAL INSUFFICIENCY [None]
  - METASTASES TO BONE [None]
